FAERS Safety Report 5262328-5 (Version None)
Quarter: 2007Q1

REPORT INFORMATION
  Report Type: 
  Country: None (occurrence: None)
  Receive Date: 20070308
  Receipt Date: 20070223
  Transmission Date: 20070707
  Serious: Yes (Other)
  Sender: FDA-Public Use
  Company Number: GXKR2007PL02016

PATIENT
  Age: 10 Year
  Sex: Female
  Weight: 40 kg

DRUGS (1)
  1. LEKOKLAR (NGX)(CLARITHROMYCIN) TABLET, 250MG [Suspect]
     Indication: BRONCHITIS
     Dosage: 250 MG, BID, ORAL
     Route: 048
     Dates: start: 20070212, end: 20070216

REACTIONS (6)
  - ARTHRALGIA [None]
  - ASTHENIA [None]
  - BONE PAIN [None]
  - HEADACHE [None]
  - MYALGIA [None]
  - SOMNOLENCE [None]
